FAERS Safety Report 24528918 (Version 1)
Quarter: 2024Q4

REPORT INFORMATION
  Report Type: Spontaneous
  Country: US (occurrence: US)
  Receive Date: 20241021
  Receipt Date: 20241021
  Transmission Date: 20250115
  Serious: Yes (Disabling, Other)
  Sender: AMGEN
  Company Number: US-AMGEN-USASP2024205677

PATIENT
  Sex: Female

DRUGS (2)
  1. TEPEZZA [Suspect]
     Active Substance: TEPROTUMUMAB-TRBW
     Indication: Endocrine ophthalmopathy
     Dosage: UNK
     Route: 040
     Dates: start: 2022
  2. TEPEZZA [Suspect]
     Active Substance: TEPROTUMUMAB-TRBW
     Dosage: UNK  3 OR 4 TREATMENTS
     Route: 040
     Dates: start: 2022, end: 2022

REACTIONS (1)
  - Deafness [Not Recovered/Not Resolved]

NARRATIVE: CASE EVENT DATE: 20220101
